FAERS Safety Report 5972660-5 (Version None)
Quarter: 2008Q4

REPORT INFORMATION
  Report Type: 
  Country: None (occurrence: None)
  Receive Date: 20081201
  Receipt Date: 20081117
  Transmission Date: 20090506
  Serious: Yes (Hospitalization)
  Sender: FDA-Public Use
  Company Number: FR-NOVOPROD-281459

PATIENT
  Sex: Female

DRUGS (6)
  1. LEVEMIR [Suspect]
     Indication: TYPE 1 DIABETES MELLITUS
     Dosage: 14 IU, QD
     Route: 058
  2. NOVOLOG MIX 70/30 [Interacting]
     Indication: TYPE 1 DIABETES MELLITUS
     Dosage: 10 IU, QD
     Route: 058
  3. NOVORAPID FLEXPEN [Interacting]
     Indication: TYPE 1 DIABETES MELLITUS
     Route: 058
  4. MOVICOL                            /01053601/ [Concomitant]
     Route: 048
  5. TANAKAN                            /01003103/ [Concomitant]
     Dosage: 3 DF, UNK
     Route: 048
  6. VELITEN [Concomitant]
     Dosage: 2 DF, UNK
     Route: 048

REACTIONS (5)
  - DISORIENTATION [None]
  - DRUG INTERACTION [None]
  - HYPOGLYCAEMIC COMA [None]
  - HYPOTHERMIA [None]
  - MALAISE [None]
